FAERS Safety Report 9563579 (Version 1)
Quarter: 2013Q3

REPORT INFORMATION
  Report Type: Spontaneous
  Country: US (occurrence: None)
  Receive Date: 20130926
  Receipt Date: 20130926
  Transmission Date: 20140515
  Serious: No
  Sender: FDA-Public Use
  Company Number: None

PATIENT
  Age: 58 Year
  Sex: Female
  Weight: 122 kg

DRUGS (1)
  1. ALFA 2 INTERFERON 2 B [Suspect]
     Dosage: 836 MILLION IU
     Dates: start: 20120924, end: 20121018

REACTIONS (1)
  - Neutrophil count decreased [None]
